FAERS Safety Report 5703110-1 (Version None)
Quarter: 2008Q2

REPORT INFORMATION
  Report Type: 
  Country: None (occurrence: None)
  Receive Date: 20080411
  Receipt Date: 20080401
  Transmission Date: 20081010
  Serious: Yes (Other)
  Sender: FDA-Public Use
  Company Number: FR-ROCHE-556356

PATIENT
  Age: 59 Year
  Sex: Male

DRUGS (4)
  1. CEFTRIAXONE SODIUM [Suspect]
     Indication: INFECTED CYST
     Route: 065
  2. CEFTRIAXONE SODIUM [Suspect]
     Dosage: PROGRESSIVE DOSAGE OVER A ONE DAY PERIOD. THIRD DOSE: 5 MG.
     Route: 065
  3. PRISTINAMYCIN [Suspect]
     Indication: INFECTED CYST
     Route: 065
  4. XYLOCAINE [Suspect]
     Indication: ANAESTHESIA
     Route: 065

REACTIONS (3)
  - BLOOD PRESSURE DECREASED [None]
  - BRONCHOSPASM [None]
  - TOXIC SKIN ERUPTION [None]
